FAERS Safety Report 10398640 (Version 1)
Quarter: 2014Q3

REPORT INFORMATION
  Report Type: Report from Study
  Country: US (occurrence: US)
  Receive Date: 20140821
  Receipt Date: 20140821
  Transmission Date: 20150326
  Serious: Yes (Hospitalization)
  Sender: FDA-Public Use
  Company Number: US-MUNDIPHARMA DS AND PHARMACOVIGILANCE-USA-2014-0116689

PATIENT
  Sex: Male

DRUGS (1)
  1. OXYCONTIN [Suspect]
     Active Substance: OXYCODONE HYDROCHLORIDE
     Indication: INTERVERTEBRAL DISC DEGENERATION
     Dosage: 40 MG, 4 TABLETS EVERY MORNING AND 5 TABLETS EVERY EVENING
     Route: 048
     Dates: start: 20140717

REACTIONS (2)
  - Bursitis infective [Recovered/Resolved]
  - Cellulitis [Recovered/Resolved]
